FAERS Safety Report 7236709-4 (Version None)
Quarter: 2011Q1

REPORT INFORMATION
  Report Type: 
  Country: None (occurrence: None)
  Receive Date: 20110110
  Receipt Date: 20101224
  Transmission Date: 20110831
  Serious: Yes (Hospitalization)
  Sender: FDA-Public Use
  Company Number: AUR-APL-2010-03238

PATIENT
  Sex: Male

DRUGS (1)
  1. SIMVASTATIN [Suspect]

REACTIONS (3)
  - HEPATIC NECROSIS [None]
  - HEPATITIS VIRAL [None]
  - HEPATITIS ACUTE [None]
